FAERS Safety Report 5457883-6 (Version None)
Quarter: 2007Q3

REPORT INFORMATION
  Report Type: 
  Country: None (occurrence: None)
  Receive Date: 20070918
  Receipt Date: 20070906
  Transmission Date: 20080115
  Serious: Yes (Other)
  Sender: FDA-Public Use
  Company Number: US-PFIZER INC-2007075742

PATIENT
  Sex: Female

DRUGS (5)
  1. LYRICA [Suspect]
     Indication: NEURALGIA
     Dates: start: 20070601, end: 20070701
  2. AMITRIPTYLINE HCL [Concomitant]
  3. LISINOPRIL [Concomitant]
  4. TRIAMTERENE AND HYDROCHLOROTHIAZIDE [Concomitant]
  5. IBUPROFEN [Concomitant]

REACTIONS (6)
  - BLOOD PRESSURE ABNORMAL [None]
  - DISTURBANCE IN ATTENTION [None]
  - EYE PAIN [None]
  - PAIN [None]
  - RASH PUSTULAR [None]
  - VISUAL ACUITY REDUCED [None]
